FAERS Safety Report 4444844-9 (Version None)
Quarter: 2004Q3

REPORT INFORMATION
  Report Type: 
  Country: None (occurrence: None)
  Receive Date: 20040907
  Receipt Date: 20040907
  Transmission Date: 20050211
  Serious: Yes (Hospitalization)
  Sender: FDA-Public Use
  Company Number: None

PATIENT
  Age: 59 Year
  Sex: Female
  Weight: 76.2043 kg

DRUGS (16)
  1. TAXOTERE [Suspect]
     Indication: BREAST CANCER
     Dosage: 100 MG/M2 IV Q 2 WEEKS
     Route: 042
     Dates: start: 20040505
  2. TAXOTERE [Suspect]
     Indication: BREAST CANCER
     Dosage: 100 MG/M2 IV Q 2 WEEKS
     Route: 042
     Dates: start: 20040519
  3. TAXOTERE [Suspect]
     Indication: BREAST CANCER
     Dosage: 100 MG/M2 IV Q 2 WEEKS
     Route: 042
     Dates: start: 20040602
  4. TAXOTERE [Suspect]
     Indication: BREAST CANCER
     Dosage: 100 MG/M2 IV Q 2 WEEKS
     Route: 042
     Dates: start: 20040625
  5. METFORMIN HCL [Concomitant]
  6. AMARYL [Concomitant]
  7. HUMULIN N [Concomitant]
  8. OS CAL [Concomitant]
  9. SYNTHROID [Concomitant]
  10. CLONIDINE HCL [Concomitant]
  11. ACEON [Concomitant]
  12. MULTI-VITAMIN [Concomitant]
  13. FESO4 [Concomitant]
  14. GARLIC [Concomitant]
  15. MAG OXIDE [Concomitant]
  16. LIPITOR [Concomitant]

REACTIONS (4)
  - AXILLARY MASS [None]
  - BREAST CANCER [None]
  - CHEST PAIN [None]
  - PERICARDIAL EFFUSION [None]
